FAERS Safety Report 16015353 (Version 1)
Quarter: 2019Q1

REPORT INFORMATION
  Report Type: Spontaneous
  Country: CA (occurrence: CA)
  Receive Date: 20190228
  Receipt Date: 20190228
  Transmission Date: 20190418
  Serious: Yes (Hospitalization)
  Sender: FDA-Public Use
  Company Number: CA-AUROBINDO-AUR-APL-2019-009986

PATIENT

DRUGS (4)
  1. ARIPIPRAZOLE. [Suspect]
     Active Substance: ARIPIPRAZOLE
     Indication: AUTISM SPECTRUM DISORDER
  2. ARIPIPRAZOLE. [Suspect]
     Active Substance: ARIPIPRAZOLE
     Indication: BIPOLAR DISORDER
     Dosage: 2 MILLIGRAM, 2 EVERY ONE DAY
     Route: 065
  3. ARIPIPRAZOLE TABLETS [Suspect]
     Active Substance: ARIPIPRAZOLE
     Indication: BIPOLAR DISORDER
     Dosage: 2 MILLIGRAM, 2 EVERY ONE DAY
     Route: 065
  4. ARIPIPRAZOLE TABLETS [Suspect]
     Active Substance: ARIPIPRAZOLE
     Indication: AUTISM SPECTRUM DISORDER

REACTIONS (4)
  - Drug effective for unapproved indication [Unknown]
  - Psychotic disorder [Unknown]
  - Inappropriate schedule of product administration [Unknown]
  - Therapy cessation [Unknown]
